FAERS Safety Report 19528743 (Version 1)
Quarter: 2021Q3

REPORT INFORMATION
  Report Type: Report from Study
  Country: None (occurrence: US)
  Receive Date: 20210713
  Receipt Date: 20210713
  Transmission Date: 20211014
  Serious: Yes (Other)
  Sender: FDA-Public Use
  Company Number: US-ABBVIE-21K-163-3982918-00

PATIENT
  Sex: Female

DRUGS (1)
  1. HUMIRA [Suspect]
     Active Substance: ADALIMUMAB
     Indication: PRODUCT USED FOR UNKNOWN INDICATION
     Dosage: CF
     Route: 058

REACTIONS (8)
  - Rheumatoid factor increased [Not Recovered/Not Resolved]
  - Photophobia [Recovering/Resolving]
  - Halo vision [Recovering/Resolving]
  - Eye pain [Recovering/Resolving]
  - Vision blurred [Recovering/Resolving]
  - Drug hypersensitivity [Recovering/Resolving]
  - Idiopathic intracranial hypertension [Not Recovered/Not Resolved]
  - Headache [Recovering/Resolving]
